FAERS Safety Report 5239832-9 (Version None)
Quarter: 2007Q1

REPORT INFORMATION
  Report Type: 
  Country: None (occurrence: None)
  Receive Date: 20070214
  Receipt Date: 20070214
  Transmission Date: 20070707
  Serious: Yes (Hospitalization)
  Sender: FDA-Public Use
  Company Number: None

PATIENT
  Age: 60 Year
  Sex: Male
  Weight: 78.0187 kg

DRUGS (11)
  1. LINEZOLID [Suspect]
     Indication: ENTEROCOCCAL INFECTION
     Dosage: 600 MG Q12HR IV
     Route: 042
     Dates: start: 20070104, end: 20070124
  2. NPH AND R INSULIN [Concomitant]
  3. LORTAB [Concomitant]
  4. METOCLOPRAMIDE [Concomitant]
  5. OMEPRAZOLE [Concomitant]
  6. CLONAZEPAM [Concomitant]
  7. ISOSORBIDE DINITRATE [Concomitant]
  8. METOPROLOL SUCCINATE [Concomitant]
  9. MIRTAZAPINE [Concomitant]
  10. TEMAZEPAM [Concomitant]
  11. SIMVASTATIN [Concomitant]

REACTIONS (1)
  - THROMBOCYTOPENIA [None]
